FAERS Safety Report 9502871 (Version 2)
Quarter: 2014Q2

REPORT INFORMATION
  Report Type: Spontaneous
  Country: RU (occurrence: RU)
  Receive Date: 20130906
  Receipt Date: 20140530
  Transmission Date: 20141212
  Serious: Yes (Other)
  Sender: FDA-Public Use
  Company Number: RU-JNJFOC-20130901830

PATIENT
  Age: 70 Year
  Sex: Female

DRUGS (2)
  1. MEBENDAZOLE [Suspect]
     Indication: MALIGNANT MELANOMA
     Route: 048
  2. PEG-INTERFERON ALPHA [Suspect]
     Indication: MALIGNANT MELANOMA
     Route: 065

REACTIONS (4)
  - Hippocampal sclerosis [Unknown]
  - Skin toxicity [Unknown]
  - Liver function test abnormal [Unknown]
  - Off label use [Unknown]
